FAERS Safety Report 15472083 (Version 1)
Quarter: 2018Q4

REPORT INFORMATION
  Report Type: Report from Study
  Country: CA (occurrence: CA)
  Receive Date: 20181008
  Receipt Date: 20181008
  Transmission Date: 20190205
  Serious: No
  Sender: FDA-Public Use
  Company Number: CA-IPSEN BIOPHARMACEUTICALS, INC.-2018-12164

PATIENT
  Age: 71 Year
  Sex: Male

DRUGS (5)
  1. SANDEZ-TAMSULOZIN CR [Concomitant]
     Route: 048
  2. SOMATULINE AUTOGEL 120MG [Suspect]
     Active Substance: LANREOTIDE ACETATE
     Dosage: 3 DOSES TO DATE
     Route: 058
     Dates: start: 20180718
  3. PROPRANOLOL [Concomitant]
     Active Substance: PROPRANOLOL HYDROCHLORIDE
     Dosage: 1/2 TABLET, 2 TIMES A DAY
     Route: 048
  4. SOMATULINE AUTOGEL 120MG [Suspect]
     Active Substance: LANREOTIDE ACETATE
     Indication: NEUROENDOCRINE TUMOUR
     Dosage: 120 MG
     Route: 058
     Dates: start: 20180718
  5. DILANTIN [Concomitant]
     Active Substance: PHENYTOIN
     Dosage: SINCE AGE 14
     Route: 048

REACTIONS (8)
  - Depressed mood [Recovering/Resolving]
  - Faeces pale [Not Recovered/Not Resolved]
  - Chromaturia [Recovered/Resolved]
  - Decreased appetite [Not Recovered/Not Resolved]
  - Weight decreased [Not Recovered/Not Resolved]
  - Asthenia [Not Recovered/Not Resolved]
  - Paraesthesia [Not Recovered/Not Resolved]
  - Hypoaesthesia [Not Recovered/Not Resolved]

NARRATIVE: CASE EVENT DATE: 201807
